FAERS Safety Report 6672421-8 (Version None)
Quarter: 2010Q2

REPORT INFORMATION
  Report Type: 
  Country: None (occurrence: None)
  Receive Date: 20100406
  Receipt Date: 20100325
  Transmission Date: 20101027
  Serious: Yes (Hospitalization)
  Sender: FDA-Public Use
  Company Number: CV20100144

PATIENT
  Age: 56 Year
  Sex: Male

DRUGS (9)
  1. FUROSEMIDE [Suspect]
     Indication: DRUG USE FOR UNKNOWN INDICATION
  2. ISONIAZIDE (ISONIAZID) (ISONIAZID) [Concomitant]
  3. HYDROCHLOROTHIAZIDE (HYDROCHLOROTHIAZIDE) (HYDROCHLOROTHIZIDE) [Concomitant]
  4. METOPROLOL SUCCINATE [Concomitant]
  5. LOSARTAN (LOSARTAN) (LOSARTAN) [Concomitant]
  6. DIGOXIN [Concomitant]
  7. ETHAMBUTOL (ETHAMBUTOL) (ETAMUBOTOL) [Concomitant]
  8. GLICLAZIDE (GLICLAZIDE) (GLICLAZIDE) [Concomitant]
  9. ACARBOSE (ACARBOSE) (ACARBOSE) [Concomitant]

REACTIONS (6)
  - BLOOD POTASSIUM INCREASED [None]
  - CARDIAC FAILURE [None]
  - CONDITION AGGRAVATED [None]
  - DRUG INTERACTION [None]
  - HEPATIC FUNCTION ABNORMAL [None]
  - RHABDOMYOLYSIS [None]
